FAERS Safety Report 21202232 (Version 2)
Quarter: 2022Q3

REPORT INFORMATION
  Report Type: Report from Study
  Country: JP (occurrence: JP)
  Receive Date: 20220811
  Receipt Date: 20220815
  Transmission Date: 20221026
  Serious: Yes (Other)
  Sender: FDA-Public Use
  Company Number: JP-JNJFOC-20220418473

PATIENT
  Age: 53 Year
  Sex: Male
  Weight: 47.1 kg

DRUGS (25)
  1. AMIVANTAMAB [Suspect]
     Active Substance: AMIVANTAMAB
     Indication: Gastrooesophageal cancer
     Dosage: CYCLE 1 DAY 1; INFUSION RATE 50 ML PER HOUR; FULL DOSE ADMINISTERED WITHOUT INTERRUPTION OR RATE CHA
     Dates: start: 20220224, end: 20220224
  2. AMIVANTAMAB [Suspect]
     Active Substance: AMIVANTAMAB
     Dosage: CYCLE 1 DAY 2; INFUSION RATE 50-75 ML PER HOUR; TOTAL VOLUME OF DILUTED DRUG PRODUCT: 250 ML?FULL DO
     Dates: start: 20220225, end: 20220225
  3. AMIVANTAMAB [Suspect]
     Active Substance: AMIVANTAMAB
     Dosage: CYCLE 1 DAY 8; INFUSION RATE 85 ML PER HOUR; FULL DOSE ADMINISTERED WITHOUT INTERRUPTION OR RATE CHA
     Dates: start: 20220303, end: 20220303
  4. AMIVANTAMAB [Suspect]
     Active Substance: AMIVANTAMAB
     Dosage: CYCLE 1 DAY 15; INFUSION RATE 125 ML PER HOUR; FULL DOSE ADMINISTERED WITHOUT INTERRUPTION OR RATE C
     Dates: start: 20220310, end: 20220310
  5. AMIVANTAMAB [Suspect]
     Active Substance: AMIVANTAMAB
     Dosage: CYCLE 1 DAY 22; INFUSION RATE 125 ML/HR; FULL DOSE ADMINISTERED WITHOUT INTERRUPTION OR RATE CHANGE.
     Dates: start: 20220317, end: 20220317
  6. AMIVANTAMAB [Suspect]
     Active Substance: AMIVANTAMAB
     Dosage: CYCLE 2 DAY 1; INFUSION RATE 125 ML PER HOUR; FULL DOSE ADMINISTERED WITHOUT INTERRUPTION OR RATE CH
     Dates: start: 20220324, end: 20220324
  7. FERROUS CITRATE [Concomitant]
     Active Substance: FERROUS CITRATE
     Indication: Anaemia
     Route: 048
     Dates: start: 20210126
  8. VONOPRAZAN FUMARATE [Concomitant]
     Active Substance: VONOPRAZAN FUMARATE
     Indication: Gastritis prophylaxis
     Route: 048
     Dates: start: 20210819
  9. ACETAMINOPHEN [Concomitant]
     Active Substance: ACETAMINOPHEN
     Indication: Tumour pain
     Route: 048
     Dates: start: 20210715, end: 20220222
  10. NALDEMEDINE TOSYLATE [Concomitant]
     Active Substance: NALDEMEDINE TOSYLATE
     Indication: Constipation
     Route: 048
     Dates: start: 20211210
  11. MAGNESIUM OXIDE [Concomitant]
     Active Substance: MAGNESIUM OXIDE
     Indication: Constipation
     Route: 048
     Dates: start: 20210715
  12. SENNOSIDES A AND B [Concomitant]
     Active Substance: SENNOSIDES A AND B
     Indication: Constipation
     Route: 048
     Dates: start: 20210715
  13. SODIUM PICOSULFATE [Concomitant]
     Active Substance: SODIUM PICOSULFATE
     Indication: Constipation
     Route: 048
     Dates: start: 20220120
  14. PROCHLORPERAZINE [Concomitant]
     Active Substance: PROCHLORPERAZINE
     Indication: Nausea
     Route: 048
     Dates: start: 20210720
  15. ALPRAZOLAM [Concomitant]
     Active Substance: ALPRAZOLAM
     Indication: Nausea
     Route: 048
     Dates: start: 20210720
  16. DICLOFENAC SODIUM [Concomitant]
     Active Substance: DICLOFENAC SODIUM
     Indication: Tumour pain
     Route: 048
     Dates: start: 20220222
  17. PREGABALIN [Concomitant]
     Active Substance: PREGABALIN
     Indication: Tumour pain
     Route: 048
     Dates: start: 20220224
  18. ZOLEDRONIC ACID [Concomitant]
     Active Substance: ZOLEDRONIC ACID
     Indication: Metastases to bone
     Dates: start: 20220113
  19. HYDROMORPHONE HYDROCHLORIDE [Concomitant]
     Active Substance: HYDROMORPHONE HYDROCHLORIDE
     Indication: Tumour pain
     Route: 048
     Dates: start: 20220228
  20. HYDROMORPHONE HYDROCHLORIDE [Concomitant]
     Active Substance: HYDROMORPHONE HYDROCHLORIDE
     Route: 048
     Dates: start: 20220310
  21. METOCLOPRAMIDE [Concomitant]
     Active Substance: METOCLOPRAMIDE
     Indication: Nausea
     Route: 048
     Dates: start: 20220223
  22. METHADONE HYDROCHLORIDE [Concomitant]
     Active Substance: METHADONE HYDROCHLORIDE
     Indication: Tumour pain
     Route: 048
     Dates: start: 20220310
  23. UNSPECIFIED INGREDIENT [Concomitant]
     Active Substance: UNSPECIFIED INGREDIENT
     Indication: Dermatitis acneiform
     Route: 061
     Dates: start: 20220313
  24. ALCLOMETASONE DIPROPIONATE [Concomitant]
     Active Substance: ALCLOMETASONE DIPROPIONATE
     Indication: Dermatitis acneiform
     Route: 061
     Dates: start: 20220313
  25. MINOCYCLINE HYDROCHLORIDE [Concomitant]
     Active Substance: MINOCYCLINE HYDROCHLORIDE
     Indication: Dermatitis acneiform
     Route: 048
     Dates: start: 20220326

REACTIONS (1)
  - Radiation pneumonitis [Not Recovered/Not Resolved]

NARRATIVE: CASE EVENT DATE: 20220406
